FAERS Safety Report 5154239-0 (Version None)
Quarter: 2006Q4

REPORT INFORMATION
  Report Type: 
  Country: None (occurrence: None)
  Receive Date: 20061114
  Receipt Date: 20061030
  Transmission Date: 20070319
  Serious: Yes (Life-Threatening, Hospitalization)
  Sender: FDA-Public Use
  Company Number: GXKR2006GB06891

PATIENT
  Age: 48 Year
  Sex: Male

DRUGS (4)
  1. ACETYLSALICYLIC ACID (NGX) (ACETYLSALIYLIC  ACID) [Suspect]
     Indication: MYOCARDIAL ISCHAEMIA
     Dosage: 75 MG, ORAL
     Route: 048
     Dates: start: 19970101
  2. CLOPIDOGREL [Suspect]
     Indication: STENT OCCLUSION
     Dosage: 75 MG,ORAL
     Route: 048
     Dates: start: 20051101, end: 20060901
  3. NICORANDIL (NICORANDIL) [Concomitant]
  4. SIMVASTATIN [Concomitant]

REACTIONS (1)
  - SPLENIC HAEMATOMA [None]
